FAERS Safety Report 4506864-5 (Version None)
Quarter: 2004Q4

REPORT INFORMATION
  Report Type: 
  Country: None (occurrence: None)
  Receive Date: 20041122
  Receipt Date: 20041103
  Transmission Date: 20050328
  Serious: Yes (Other)
  Sender: FDA-Public Use
  Company Number: PHEH2004US11838

PATIENT
  Age: 58 Year
  Sex: Female

DRUGS (2)
  1. ZELNORM [Suspect]
     Indication: IRRITABLE BOWEL SYNDROME
     Dates: start: 20040915
  2. REGLAN [Concomitant]

REACTIONS (10)
  - ABDOMINAL PAIN [None]
  - CONSTIPATION [None]
  - DIARRHOEA [None]
  - EOSINOPHIL COUNT DECREASED [None]
  - FAECES DISCOLOURED [None]
  - HAEMATOCHEZIA [None]
  - INTESTINAL SPASM [None]
  - LOOSE STOOLS [None]
  - PROCTALGIA [None]
  - RECTAL HAEMORRHAGE [None]
